FAERS Safety Report 7549603-6 (Version None)
Quarter: 2011Q2

REPORT INFORMATION
  Report Type: 
  Country: None (occurrence: None)
  Receive Date: 20110615
  Receipt Date: 20110602
  Transmission Date: 20111010
  Serious: Yes (Hospitalization)
  Sender: FDA-Public Use
  Company Number: B0716461A

PATIENT
  Sex: Female

DRUGS (7)
  1. SIGMART [Concomitant]
     Dosage: 20MG PER DAY
     Route: 048
  2. ISOSORBIDE DINITRATE [Concomitant]
     Dosage: 80MG PER DAY
     Route: 048
  3. PREDNISOLONE [Concomitant]
     Indication: IDIOPATHIC THROMBOCYTOPENIC PURPURA
     Dosage: 30MG PER DAY
     Route: 048
  4. PROMACTA [Suspect]
     Indication: IDIOPATHIC THROMBOCYTOPENIC PURPURA
     Dosage: 12.5MG PER DAY
     Route: 048
     Dates: start: 20110415, end: 20110422
  5. LOSARTAN POTASSIUM [Concomitant]
     Dosage: 50MG PER DAY
     Route: 048
  6. ADALAT [Concomitant]
     Dosage: 60MG PER DAY
     Route: 048
  7. BEZATOL SR [Concomitant]
     Dosage: 200MG PER DAY
     Route: 048

REACTIONS (1)
  - PULMONARY EMBOLISM [None]
